FAERS Safety Report 7484134-3 (Version None)
Quarter: 2011Q2

REPORT INFORMATION
  Report Type: 
  Country: None (occurrence: None)
  Receive Date: 20110513
  Receipt Date: 20110513
  Transmission Date: 20111010
  Serious: No
  Sender: FDA-Public Use
  Company Number: None

PATIENT
  Age: 14 Year
  Sex: Female
  Weight: 54.4316 kg

DRUGS (1)
  1. GEODON [Suspect]
     Indication: MAJOR DEPRESSION
     Dosage: 60MG Q DINNER PO
     Route: 048
     Dates: start: 20101227

REACTIONS (1)
  - EXTRAPYRAMIDAL DISORDER [None]
